FAERS Safety Report 9565361 (Version 1)
Quarter: 2013Q3

REPORT INFORMATION
  Report Type: Spontaneous
  Country: US (occurrence: US)
  Receive Date: 20130930
  Receipt Date: 20130930
  Transmission Date: 20140515
  Serious: Yes (Hospitalization)
  Sender: FDA-Public Use
  Company Number: US-PFIZER INC-2013278085

PATIENT
  Age: 81 Year
  Sex: Female

DRUGS (1)
  1. XALKORI [Suspect]
     Indication: NEOPLASM MALIGNANT
     Dosage: 200 MG, 2X/DAY
     Dates: start: 20130807

REACTIONS (3)
  - Vomiting [Unknown]
  - Dizziness [Unknown]
  - Myalgia [Unknown]
